FAERS Safety Report 6524947-5 (Version None)
Quarter: 2010Q1

REPORT INFORMATION
  Report Type: 
  Country: None (occurrence: None)
  Receive Date: 20100104
  Receipt Date: 20091222
  Transmission Date: 20100710
  Serious: Yes (Other)
  Sender: FDA-Public Use
  Company Number: US-SANOFI-AVENTIS-2009SA010686

PATIENT
  Age: 65 Year
  Sex: Female

DRUGS (8)
  1. MULTAQ [Suspect]
     Indication: ATRIAL FIBRILLATION
     Route: 048
     Dates: start: 20090801, end: 20091101
  2. AVAPRO [Concomitant]
  3. NEXIUM [Concomitant]
  4. ZOCOR [Concomitant]
  5. PREDNISONE [Concomitant]
  6. SYNTHROID [Concomitant]
  7. COUMADIN [Concomitant]
  8. VITAMINS [Concomitant]

REACTIONS (1)
  - ATRIAL FIBRILLATION [None]
